FAERS Safety Report 13265739 (Version 2)
Quarter: 2017Q2

REPORT INFORMATION
  Report Type: Report from Study
  Country: CA (occurrence: CA)
  Receive Date: 20170223
  Receipt Date: 20170420
  Transmission Date: 20170830
  Serious: Yes (Other)
  Sender: FDA-Public Use
  Company Number: PHHY2016CA100024

PATIENT
  Age: 72 Year
  Sex: Female

DRUGS (2)
  1. OCPHYL [Concomitant]
     Indication: PRODUCT USED FOR UNKNOWN INDICATION
     Dosage: 100 UG, TID
     Route: 065
     Dates: start: 20160518
  2. SANDOSTATIN LAR DEPOT [Suspect]
     Active Substance: OCTREOTIDE ACETATE
     Indication: CARCINOID TUMOUR
     Dosage: 30 MG, QMO, EVERY 4 WEEKS
     Route: 030
     Dates: start: 20160707

REACTIONS (6)
  - Nausea [Unknown]
  - Epistaxis [Unknown]
  - Sleep disorder [Unknown]
  - Fatigue [Unknown]
  - Blood pressure increased [Unknown]
  - Needle issue [Unknown]

NARRATIVE: CASE EVENT DATE: 20160707
